FAERS Safety Report 7442566-3 (Version None)
Quarter: 2011Q2

REPORT INFORMATION
  Report Type: 
  Country: None (occurrence: None)
  Receive Date: 20110426
  Receipt Date: 20110426
  Transmission Date: 20111010
  Serious: Yes (Hospitalization)
  Sender: FDA-Public Use
  Company Number: None

PATIENT
  Age: 48 Year
  Sex: Female
  Weight: 66.6788 kg

DRUGS (11)
  1. PANTOPRAZOLE [Concomitant]
  2. RIFAXIMIN [Concomitant]
  3. SIMVASTATIN [Concomitant]
  4. ACETAMINOPHEN [Concomitant]
  5. LISPRO INSULIN [Concomitant]
  6. MYLANTA [Concomitant]
  7. VIT B [Concomitant]
  8. MICONAZOLE [Concomitant]
  9. LACTULOSE [Concomitant]
  10. METFORMIN [Concomitant]
  11. LATUDA [Suspect]
     Indication: SCHIZOPHRENIA, PARANOID TYPE
     Dosage: 80 MG DAILY PO
     Route: 048
     Dates: start: 20110414, end: 20110417

REACTIONS (1)
  - PLATELET COUNT DECREASED [None]
